FAERS Safety Report 21537958 (Version 2)
Quarter: 2022Q4

REPORT INFORMATION
  Report Type: Spontaneous
  Country: US (occurrence: US)
  Receive Date: 20221101
  Receipt Date: 20221209
  Transmission Date: 20230113
  Serious: No
  Sender: FDA-Public Use
  Company Number: US-GILEAD-2022-0603176

PATIENT
  Age: 39 Year
  Sex: Male

DRUGS (4)
  1. DESCOVY [Suspect]
     Active Substance: EMTRICITABINE\TENOFOVIR ALAFENAMIDE FUMARATE
     Indication: HIV infection
     Route: 065
  2. TROGARZO [IBALIZUMAB-UIYK] [Concomitant]
  3. CABOTEGRAVIR [Concomitant]
     Active Substance: CABOTEGRAVIR
  4. DORAVIRINE [Concomitant]
     Active Substance: DORAVIRINE

REACTIONS (1)
  - Treatment failure [Not Recovered/Not Resolved]
